FAERS Safety Report 9844622 (Version 1)
Quarter: 2014Q1

REPORT INFORMATION
  Report Type: Spontaneous
  Country: US (occurrence: None)
  Receive Date: 20140122
  Receipt Date: 20140122
  Transmission Date: 20141002
  Serious: Yes (Death)
  Sender: FDA-Public Use
  Company Number: B0958955A

PATIENT
  Age: 54 Year
  Sex: Male

DRUGS (6)
  1. MORPHINE [Suspect]
     Dosage: UNK/ UNK/ ORAL
     Route: 048
  2. ALPRAZOLAM [Suspect]
     Dosage: UNK/ UNK/ ORAL
     Route: 048
  3. BUPROPION HYDROCHLORIDE [Suspect]
     Dosage: UNK/UNK/ ORAL
     Route: 048
  4. AMITRIPTYLINE [Suspect]
     Dosage: UNK/UNK/ORAL
     Route: 048
  5. CITALOPRAM [Suspect]
     Dosage: UNK/UNK ORAL
     Route: 048
  6. QUETIAPINE [Suspect]
     Dosage: UNK/ UNK/ ORAL
     Route: 048

REACTIONS (1)
  - Drug abuse [None]
